FAERS Safety Report 5825967-6 (Version None)
Quarter: 2008Q3

REPORT INFORMATION
  Report Type: 
  Country: None (occurrence: None)
  Receive Date: 20080729
  Receipt Date: 20080724
  Transmission Date: 20090109
  Serious: Yes (Death, Disabling, Other)
  Sender: FDA-Public Use
  Company Number: PHHY2008JP01911

PATIENT
  Sex: Female
  Weight: 39 kg

DRUGS (4)
  1. ZOMETA [Suspect]
     Indication: BREAST CANCER
     Dosage: 4 MG, QMO
     Route: 042
     Dates: start: 20060701, end: 20061101
  2. AREDIA [Suspect]
     Indication: METASTASES TO BONE
     Dosage: 30 MG, QMO
     Route: 042
     Dates: start: 20041101, end: 20060701
  3. XELODA [Concomitant]
     Dosage: 1800 MG
     Route: 048
  4. AROMASIN [Concomitant]
     Dosage: 25 MG
     Route: 048

REACTIONS (14)
  - ABSCESS MANAGEMENT [None]
  - BONE DENSITY INCREASED [None]
  - BONE DISORDER [None]
  - CARDIO-RESPIRATORY ARREST [None]
  - COMPUTERISED TOMOGRAM ABNORMAL [None]
  - GENERAL PHYSICAL HEALTH DETERIORATION [None]
  - GINGIVAL ABSCESS [None]
  - GINGIVAL SWELLING [None]
  - IMPAIRED HEALING [None]
  - METASTASES TO LUNG [None]
  - OSTEOMYELITIS [None]
  - OSTEONECROSIS [None]
  - PRIMARY SEQUESTRUM [None]
  - TOOTH EXTRACTION [None]
